FAERS Safety Report 11128913 (Version 1)
Quarter: 2015Q2

REPORT INFORMATION
  Report Type: Spontaneous
  Country: US (occurrence: US)
  Receive Date: 20150521
  Receipt Date: 20150521
  Transmission Date: 20150821
  Serious: Yes (Hospitalization)
  Sender: FDA-Public Use
  Company Number: US-ASTELLAS-2015US016929

PATIENT
  Age: 54 Year
  Sex: Female

DRUGS (1)
  1. PROGRAF [Suspect]
     Active Substance: TACROLIMUS\TACROLIMUS ANHYDROUS
     Indication: RENAL TRANSPLANT
     Dosage: 4 MG (FOUR CAPSULES), TWICE DAILY
     Route: 048
     Dates: start: 20060419

REACTIONS (1)
  - Emergency care [Unknown]

NARRATIVE: CASE EVENT DATE: 20150513
